FAERS Safety Report 6771215-2 (Version None)
Quarter: 2010Q2

REPORT INFORMATION
  Report Type: 
  Country: None (occurrence: None)
  Receive Date: 20100616
  Receipt Date: 20100503
  Transmission Date: 20101027
  Serious: Yes (Other)
  Sender: FDA-Public Use
  Company Number: NL-ASTRAZENECA-2010SE22832

PATIENT
  Sex: Female

DRUGS (12)
  1. SEROQUEL [Suspect]
     Indication: DEPRESSION
     Route: 048
  2. PARNATE [Suspect]
     Indication: DEPRESSION
  3. CYTOMEL [Suspect]
     Indication: DEPRESSION
  4. ZYBAN [Suspect]
     Indication: DEPRESSION
  5. ZOLOFT [Suspect]
     Indication: DEPRESSION
  6. SEROXAT [Suspect]
     Indication: DEPRESSION
  7. NORTRIPTYLINE HCL [Suspect]
     Indication: DEPRESSION
  8. REMERON [Suspect]
     Indication: DEPRESSION
  9. EFFEXOR [Suspect]
     Indication: DEPRESSION
  10. CYMBALTA [Suspect]
     Indication: DEPRESSION
  11. CIPRAMIL [Suspect]
     Indication: DEPRESSION
  12. SAROTEX [Suspect]
     Indication: DEPRESSION

REACTIONS (8)
  - HEADACHE [None]
  - HOMICIDAL IDEATION [None]
  - INSOMNIA [None]
  - IRRITABILITY [None]
  - LIBIDO DECREASED [None]
  - NAUSEA [None]
  - SUICIDAL IDEATION [None]
  - WEIGHT INCREASED [None]
